FAERS Safety Report 9586852 (Version 1)
Quarter: 2013Q4

REPORT INFORMATION
  Report Type: Spontaneous
  Country: US (occurrence: US)
  Receive Date: 20131003
  Receipt Date: 20131003
  Transmission Date: 20140711
  Serious: No
  Sender: FDA-Public Use
  Company Number: US-BAYER-2013-119575

PATIENT
  Age: 87 Year
  Sex: Male
  Weight: 90.7 kg

DRUGS (1)
  1. ALEVE TABLET [Suspect]
     Indication: MUSCULOSKELETAL CHEST PAIN
     Dosage: 2 DF, PRN
     Route: 048
     Dates: start: 20131001

REACTIONS (1)
  - Extra dose administered [None]
